FAERS Safety Report 15929802 (Version 2)
Quarter: 2019Q1

REPORT INFORMATION
  Report Type: Spontaneous
  Country: JP (occurrence: JP)
  Receive Date: 20190206
  Receipt Date: 20190320
  Transmission Date: 20190417
  Serious: Yes (Hospitalization, Other)
  Sender: FDA-Public Use
  Company Number: JP-ALLERGAN-1840466US

PATIENT
  Sex: Male

DRUGS (20)
  1. UREPEARL [Concomitant]
     Active Substance: UREA
     Dosage: UNK UNK, TID
  2. BOTOX [Suspect]
     Active Substance: ONABOTULINUMTOXINA
     Dosage: 360 UNITS, SINGLE
     Route: 030
     Dates: start: 20160525, end: 20160525
  3. BOTOX [Suspect]
     Active Substance: ONABOTULINUMTOXINA
     Dosage: 250 UNITS, SINGLE
     Route: 030
     Dates: start: 20150128, end: 20150128
  4. BOTOX [Suspect]
     Active Substance: ONABOTULINUMTOXINA
     Dosage: 250 UNITS, SINGLE
     Route: 030
     Dates: start: 20141022, end: 20141022
  5. ALOSENN [Concomitant]
     Active Substance: SENNA LEAF
     Dosage: 1 G, QD, BEFORE BEDTIME
  6. LOXOPROFEN SODIUM [Concomitant]
     Active Substance: LOXOPROFEN SODIUM
     Dosage: 100-200 MG, QD
  7. BOTOX [Suspect]
     Active Substance: ONABOTULINUMTOXINA
     Dosage: 250 UNITS, SINGLE
     Route: 030
     Dates: start: 20150513, end: 20150513
  8. BOTOX [Suspect]
     Active Substance: ONABOTULINUMTOXINA
     Indication: MUSCLE SPASTICITY
     Dosage: 360 UNITS, SINGLE
     Route: 030
     Dates: start: 20160907, end: 20160907
  9. BOTOX [Suspect]
     Active Substance: ONABOTULINUMTOXINA
     Dosage: 350 UNITS, SINGLE
     Route: 030
     Dates: start: 20160127, end: 20160127
  10. METHYCOBAL [Concomitant]
     Active Substance: METHYLCOBALAMIN
     Dosage: 0.5 MG, TID, AFTER EACH MEAL
  11. DANTRIUM [Concomitant]
     Active Substance: DANTROLENE SODIUM
     Dosage: UNK
     Dates: end: 20161005
  12. MAGNESIUM OXIDE. [Concomitant]
     Active Substance: MAGNESIUM OXIDE
     Dosage: UNK UNK, TID, AFTER EACH MEAL
  13. BOTOX [Suspect]
     Active Substance: ONABOTULINUMTOXINA
     Dosage: 360 UNITS, SINGLE
     Route: 030
     Dates: start: 20131120, end: 20131120
  14. MAGMITT [Concomitant]
     Active Substance: MAGNESIUM OXIDE
     Dosage: UNK UNK, TID, AFTER EACH MEAL
  15. TERNELIN [Concomitant]
     Active Substance: TIZANIDINE
     Dosage: 1 MG, TID, AFTER EACH MEAL
     Dates: end: 20161005
  16. DAIKENCHUTO [Concomitant]
     Active Substance: HERBALS
     Dosage: 2.5 G, TID, BEFORE EACH MEAL
  17. BOTOX [Suspect]
     Active Substance: ONABOTULINUMTOXINA
     Dosage: 250 UNITS, SINGLE
     Route: 030
     Dates: start: 20150826, end: 20150826
  18. BOTOX [Suspect]
     Active Substance: ONABOTULINUMTOXINA
     Dosage: 300 UNITS, SINGLE
     Route: 030
     Dates: start: 20140618, end: 20140618
  19. BOTOX [Suspect]
     Active Substance: ONABOTULINUMTOXINA
     Dosage: 360 UNITS, SINGLE
     Route: 030
     Dates: start: 20140226, end: 20140226
  20. DEPAKENE [Concomitant]
     Active Substance: VALPROIC ACID
     Dosage: 200 MG, BID, AFTER BREAKFAST AND DINNER

REACTIONS (7)
  - Diplopia [Recovered/Resolved]
  - Movement disorder [Recovering/Resolving]
  - Muscle spasms [Recovering/Resolving]
  - Dysstasia [Recovering/Resolving]
  - Botulism [Recovering/Resolving]
  - Discomfort [Recovering/Resolving]
  - Asthenia [Recovering/Resolving]

NARRATIVE: CASE EVENT DATE: 201410
